FAERS Safety Report 18297335 (Version 1)
Quarter: 2020Q3

REPORT INFORMATION
  Report Type: Spontaneous
  Country: US (occurrence: US)
  Receive Date: 20200922
  Receipt Date: 20200922
  Transmission Date: 20201103
  Serious: No
  Sender: FDA-Public Use
  Company Number: US-AMARIN PHARMA, INC.-2019AMR000351

PATIENT
  Age: 64 Year
  Sex: Female
  Weight: 65.38 kg

DRUGS (3)
  1. SYNTHROID [Concomitant]
     Active Substance: LEVOTHYROXINE SODIUM
     Indication: THYROID DISORDER
     Route: 048
  2. VASCEPA [Suspect]
     Active Substance: ICOSAPENT ETHYL
     Indication: INFLAMMATION
     Route: 048
     Dates: start: 20190830, end: 20190831
  3. VASCEPA [Suspect]
     Active Substance: ICOSAPENT ETHYL
     Route: 048
     Dates: start: 20190903, end: 20190903

REACTIONS (3)
  - Pain in extremity [Recovering/Resolving]
  - Off label use [Unknown]
  - Arthralgia [Not Recovered/Not Resolved]
